FAERS Safety Report 8108702-0 (Version None)
Quarter: 2012Q1

REPORT INFORMATION
  Report Type: 
  Country: None (occurrence: None)
  Receive Date: 20120202
  Receipt Date: 20120130
  Transmission Date: 20120608
  Serious: No
  Sender: FDA-Public Use
  Company Number: US-PFIZER INC-2012009980

PATIENT
  Sex: Male
  Weight: 89.796 kg

DRUGS (7)
  1. FLEXERIL [Concomitant]
     Dosage: UNK
  2. CARISOPRODOL [Concomitant]
     Dosage: UNK
  3. ALPRAZOLAM [Suspect]
     Dosage: 2 MG, UNK
  4. XANAX [Suspect]
     Indication: SLEEP DISORDER
     Dosage: 2 MG, 1X/DAY
     Route: 048
     Dates: start: 20100101, end: 20111201
  5. NEXIUM [Concomitant]
     Indication: GASTROOESOPHAGEAL REFLUX DISEASE
     Dosage: UNK
  6. OXYCODONE [Concomitant]
     Dosage: 30 MG
  7. GABAPENTIN [Concomitant]
     Dosage: UNK

REACTIONS (1)
  - SCIATICA [None]
